FAERS Safety Report 9260827 (Version 1)
Quarter: 2013Q1

REPORT INFORMATION
  Report Type: Spontaneous
  Country: US (occurrence: None)
  Receive Date: 20121212
  Receipt Date: 20121212
  Transmission Date: 20140127
  Serious: No
  Sender: FDA-Public Use
  Company Number: 1209US002352

PATIENT
  Age: 67 Year
  Sex: Male

DRUGS (3)
  1. VICTRELIS [Suspect]
     Indication: HEPATITIS C
     Route: 048
     Dates: start: 20120409, end: 2012
  2. PEGASYS [Suspect]
  3. RIBASPHERE [Suspect]

REACTIONS (3)
  - Treatment failure [None]
  - Anaemia [None]
  - Neutropenia [None]
